FAERS Safety Report 21311267 (Version 1)
Quarter: 2022Q3

REPORT INFORMATION
  Report Type: Spontaneous
  Country: US (occurrence: None)
  Receive Date: 20220909
  Receipt Date: 20220909
  Transmission Date: 20221027
  Serious: No
  Sender: FDA-Public Use
  Company Number: US-ARIS GLOBAL-202202-0310

PATIENT
  Sex: Female

DRUGS (6)
  1. OXERVATE [Suspect]
     Active Substance: CENEGERMIN-BKBJ
     Indication: Illness
     Route: 047
     Dates: start: 20220209
  2. OXERVATE [Suspect]
     Active Substance: CENEGERMIN-BKBJ
     Indication: Neurotrophic keratopathy
  3. SERUM TEARS [Concomitant]
  4. ARTIFICIAL TEARS [Concomitant]
     Active Substance: GLYCERIN\HYPROMELLOSES\POLYETHYLENE GLYCOL 400
  5. VALACYCLOVIR [Concomitant]
     Active Substance: VALACYCLOVIR HYDROCHLORIDE
  6. BIOTIN [Concomitant]
     Active Substance: BIOTIN

REACTIONS (5)
  - Eye pain [Not Recovered/Not Resolved]
  - Eye irritation [Recovering/Resolving]
  - Photophobia [Not Recovered/Not Resolved]
  - Lacrimation increased [Recovering/Resolving]
  - Eye swelling [Recovering/Resolving]
